FAERS Safety Report 7548369-3 (Version None)
Quarter: 2011Q2

REPORT INFORMATION
  Report Type: 
  Country: None (occurrence: None)
  Receive Date: 20110615
  Receipt Date: 20110603
  Transmission Date: 20111010
  Serious: Yes (Hospitalization, Other)
  Sender: FDA-Public Use
  Company Number: US-MYLANLABS-2011S1011520

PATIENT
  Age: 45 Year
  Sex: Female
  Weight: 61.24 kg

DRUGS (7)
  1. LYRICA [Suspect]
     Indication: FIBROMYALGIA
     Route: 048
  2. AMITRIPTYLINE HCL [Suspect]
     Indication: SLEEP DISORDER
     Route: 048
  3. ZANAFLEX [Suspect]
     Indication: SLEEP DISORDER
     Route: 048
  4. CYMBALTA [Concomitant]
     Indication: FIBROMYALGIA
     Dates: start: 20060101
  5. AMITRIPTYLINE HCL [Suspect]
     Indication: FIBROMYALGIA
     Route: 048
  6. ZANAFLEX [Suspect]
     Indication: FIBROMYALGIA
     Route: 048
  7. SINGULAIR [Concomitant]
     Indication: HYPERSENSITIVITY

REACTIONS (6)
  - INTENTIONAL OVERDOSE [None]
  - THYROID DISORDER [None]
  - FEELING ABNORMAL [None]
  - MENTAL DISORDER [None]
  - SUICIDE ATTEMPT [None]
  - ASTHMA [None]
